FAERS Safety Report 8309325-0 (Version None)
Quarter: 2012Q2

REPORT INFORMATION
  Report Type: 
  Country: None (occurrence: None)
  Receive Date: 20120425
  Receipt Date: 20120417
  Transmission Date: 20120825
  Serious: Yes (Other)
  Sender: FDA-Public Use
  Company Number: US-ASTRAZENECA-2012SE20214

PATIENT
  Age: 63 Year
  Sex: Female
  Weight: 59 kg

DRUGS (26)
  1. SEROQUEL [Suspect]
     Dosage: TWICE A DAY
     Route: 048
     Dates: end: 20110101
  2. CLONAZEPAM [Suspect]
     Dosage: 3 TIMES A DAY
     Route: 065
  3. GABAPENTIN [Concomitant]
     Route: 048
  4. ACETAMINOPHEN AND HYDROCODONE BITARTRATE [Concomitant]
  5. ROPINIROLE [Concomitant]
  6. SEROQUEL [Suspect]
     Indication: MENTAL DISORDER
     Route: 048
     Dates: start: 20040101
  7. ADVIR [Concomitant]
     Dosage: 250/50
  8. PAIN PATCH [Concomitant]
  9. SEROQUEL [Suspect]
     Indication: BIPOLAR DISORDER
     Route: 048
     Dates: start: 20040101
  10. METFORMIN HCL [Concomitant]
     Dosage: TWO TABLETS BID (TWO TIMES A DAY)
  11. SEROQUEL [Suspect]
     Route: 048
  12. VENLAFAXINE [Concomitant]
  13. TIZANIDINE HCL [Concomitant]
     Route: 048
  14. VALIUM [Concomitant]
  15. SEROQUEL [Suspect]
     Indication: DEPRESSION
     Route: 048
     Dates: start: 20040101
  16. SEROQUEL [Suspect]
     Dosage: TWICE A DAY
     Route: 048
     Dates: end: 20110101
  17. SEROQUEL [Suspect]
     Route: 048
  18. SEROQUEL [Suspect]
     Route: 048
  19. POT CHLOR ER [Concomitant]
     Route: 048
  20. VICODIN [Concomitant]
  21. EFFEXOR [Concomitant]
  22. LOVAZA [Concomitant]
     Route: 048
  23. SEROQUEL [Suspect]
     Dosage: TWICE A DAY
     Route: 048
     Dates: end: 20110101
  24. ZOLPIDEM [Concomitant]
     Indication: SLEEP DISORDER
  25. DETROL [Concomitant]
     Route: 048
  26. NORCO [Concomitant]

REACTIONS (7)
  - OSTEOPOROSIS [None]
  - HYPERTENSION [None]
  - BLOOD CHOLESTEROL ABNORMAL [None]
  - BLOOD CHOLESTEROL INCREASED [None]
  - DIABETES MELLITUS [None]
  - DEPRESSION [None]
  - FIBROMYALGIA [None]
